FAERS Safety Report 11718751 (Version 1)
Quarter: 2015Q4

REPORT INFORMATION
  Report Type: Spontaneous
  Country: GB (occurrence: GB)
  Receive Date: 20151110
  Receipt Date: 20151110
  Transmission Date: 20160304
  Serious: Yes (Other)
  Sender: FDA-Public Use
  Company Number: GB-TEVA-605899ACC

PATIENT
  Age: 40 Year
  Sex: Female
  Weight: 60 kg

DRUGS (4)
  1. AMOXICILLIN. [Suspect]
     Active Substance: AMOXICILLIN
     Route: 048
     Dates: start: 20151005, end: 20151012
  2. BUDESONIDE. [Concomitant]
     Active Substance: BUDESONIDE
     Dosage: 4 DOSAGE FORMS DAILY;
     Route: 055
     Dates: start: 20140908
  3. LOGYNON [Concomitant]
     Dosage: TAKE ONE AS DIRECTED
     Dates: start: 20140908
  4. DUORESP SPIROMAX [Concomitant]
     Active Substance: BUDESONIDE\FORMOTEROL
     Dosage: USE AS DIRECTED
     Dates: start: 20150813

REACTIONS (3)
  - Generalised erythema [Not Recovered/Not Resolved]
  - Rash pruritic [Not Recovered/Not Resolved]
  - Pallor [Not Recovered/Not Resolved]

NARRATIVE: CASE EVENT DATE: 20151005
